FAERS Safety Report 8496296-X (Version None)
Quarter: 2012Q3

REPORT INFORMATION
  Report Type: 
  Country: None (occurrence: None)
  Receive Date: 20120709
  Receipt Date: 20120704
  Transmission Date: 20120928
  Serious: Yes (Hospitalization, Other)
  Sender: FDA-Public Use
  Company Number: PHHY2012FR023286

PATIENT
  Sex: Female
  Weight: 65 kg

DRUGS (7)
  1. POLY-KARAYA [Concomitant]
     Indication: DYSPEPSIA
     Dosage: UNK UKN, UNK
     Dates: start: 20000101, end: 20110101
  2. KARDEGIC [Concomitant]
     Indication: TRANSIENT ISCHAEMIC ATTACK
     Dosage: 300 MG, QD
     Dates: start: 20111201
  3. PERINDOPRIL ERBUMINE [Concomitant]
     Indication: TRANSIENT ISCHAEMIC ATTACK
     Dosage: 2.5 MG, BID
     Dates: start: 20110101, end: 20120101
  4. MICROLAX [Concomitant]
     Indication: CONSTIPATION
     Dosage: UNK UKN, UNK
     Dates: start: 20111201
  5. INDAPAMIDE [Concomitant]
     Dosage: UNK UKN, UNK
     Dates: start: 20110101, end: 20120101
  6. ZOLEDRONOC ACID [Suspect]
     Indication: OSTEOPOROSIS
     Dosage: 4 MG, UNK
     Route: 042
     Dates: start: 20110615
  7. ALDACTONE [Concomitant]
     Indication: TRANSIENT ISCHAEMIC ATTACK
     Dosage: UNK UKN, ONCE A DAY

REACTIONS (10)
  - COUGH [None]
  - BARRETT'S OESOPHAGUS [None]
  - OESOPHAGITIS [None]
  - CHEST PAIN [None]
  - GASTRIC ULCER [None]
  - DYSPEPSIA [None]
  - GASTROINTESTINAL NECROSIS [None]
  - INCORRECT DOSE ADMINISTERED [None]
  - METAPLASIA [None]
  - GASTROOESOPHAGEAL REFLUX DISEASE [None]
